FAERS Safety Report 8919183 (Version 1)
Quarter: 2012Q4

REPORT INFORMATION
  Report Type: Spontaneous
  Country: GB (occurrence: None)
  Receive Date: 20121114
  Receipt Date: 20121114
  Transmission Date: 20130627
  Serious: Yes (Death, Other)
  Sender: FDA-Public Use
  Company Number: GER/UKI/12/0026544

PATIENT

DRUGS (2)
  1. ATORVASTATIN [Suspect]
     Indication: DRUG USE FOR UNKNOWN INDICATION
  2. FUCIDIN [Suspect]
     Indication: DRUG USE FOR UNKNOWN INDICATION

REACTIONS (2)
  - Rhabdomyolysis [None]
  - Labelled drug-drug interaction medication error [None]
